FAERS Safety Report 7732956-3 (Version None)
Quarter: 2011Q3

REPORT INFORMATION
  Report Type: 
  Country: None (occurrence: None)
  Receive Date: 20110907
  Receipt Date: 20110901
  Transmission Date: 20111222
  Serious: Yes (Other)
  Sender: FDA-Public Use
  Company Number: JP-PFIZER INC-2011201316

PATIENT
  Age: 30 Year
  Sex: Male

DRUGS (4)
  1. LYRICA [Suspect]
     Dosage: 25 MG, 2X/DAY
     Route: 048
     Dates: start: 20110101, end: 20110824
  2. METHYCOBAL [Concomitant]
     Dosage: UNK
  3. LYRICA [Suspect]
     Dosage: 75 MG, 2X/DAY
     Route: 048
     Dates: start: 20110825, end: 20110829
  4. TEGRETOL [Concomitant]
     Dosage: UNK

REACTIONS (2)
  - DRUG INEFFECTIVE [None]
  - DRUG ERUPTION [None]
